FAERS Safety Report 10686810 (Version 3)
Quarter: 2015Q1

REPORT INFORMATION
  Report Type: Spontaneous
  Country: JP (occurrence: JP)
  Receive Date: 20150101
  Receipt Date: 20150202
  Transmission Date: 20150720
  Serious: Yes (Other)
  Sender: FDA-Public Use
  Company Number: JP-AMGEN-JPNSP2014102050

PATIENT
  Age: 63 Year
  Sex: Female

DRUGS (4)
  1. G-LASTA [Suspect]
     Active Substance: PEGFILGRASTIM
     Indication: PRODUCT USED FOR UNKNOWN INDICATION
     Dosage: 3.6 MG, UNK
     Route: 058
  2. ENDOXAN                            /00021102/ [Suspect]
     Active Substance: CYCLOPHOSPHAMIDE
     Indication: BREAST CANCER
     Dosage: 600 MG, UNK
     Route: 041
  3. EPIRUBICIN HYDROCHLORIDE. [Suspect]
     Active Substance: EPIRUBICIN HYDROCHLORIDE
     Indication: BREAST CANCER
     Dosage: 90 MG, UNK
     Route: 041
  4. 5-FU                               /00098801/ [Suspect]
     Active Substance: FLUOROURACIL
     Indication: BREAST CANCER
     Dosage: 600 MG, UNK
     Route: 041

REACTIONS (1)
  - Sepsis [Recovered/Resolved]
